FAERS Safety Report 11216428 (Version 1)
Quarter: 2015Q2

REPORT INFORMATION
  Report Type: Spontaneous
  Country: US (occurrence: None)
  Receive Date: 20150623
  Receipt Date: 20150623
  Transmission Date: 20150821
  Serious: Yes (Other)
  Sender: FDA-Public Use
  Company Number: None

PATIENT
  Age: 26 Year
  Sex: Male
  Weight: 94.35 kg

DRUGS (2)
  1. ONDANSETRON [Suspect]
     Active Substance: ONDANSETRON
     Indication: NAUSEA
     Dosage: TAKEN UNDER THE TONGUE
     Route: 060
     Dates: start: 20150618, end: 20150619
  2. METHOCARBOMAL [Concomitant]
     Active Substance: METHOCARBAMOL

REACTIONS (1)
  - Speech disorder [None]

NARRATIVE: CASE EVENT DATE: 20150619
